FAERS Safety Report 26122539 (Version 2)
Quarter: 2025Q4

REPORT INFORMATION
  Report Type: Spontaneous
  Country: CN (occurrence: CN)
  Receive Date: 20251204
  Receipt Date: 20251210
  Transmission Date: 20260117
  Serious: No
  Sender: IPSEN BIOPHARMACEUTICALS, INC.
  Company Number: CN-IPSEN Group, Research and Development-2025-29619

PATIENT

DRUGS (2)
  1. DYSPORT [Suspect]
     Active Substance: ABOBOTULINUMTOXINA
     Indication: Skin wrinkling
     Dates: start: 202511, end: 202511
  2. DYSPORT [Suspect]
     Active Substance: ABOBOTULINUMTOXINA
     Indication: Off label use

REACTIONS (2)
  - Off label use [Unknown]
  - Injection site muscle atrophy [Unknown]

NARRATIVE: CASE EVENT DATE: 20251101
